FAERS Safety Report 17658739 (Version 1)
Quarter: 2020Q2

REPORT INFORMATION
  Report Type: Report from Study
  Country: NL (occurrence: NL)
  Receive Date: 20200413
  Receipt Date: 20200413
  Transmission Date: 20200713
  Serious: Yes (Other)
  Sender: FDA-Public Use
  Company Number: NL-AUROBINDO-AUR-APL-2020-015867

PATIENT
  Age: 70 Year
  Sex: Female

DRUGS (2)
  1. CONTRALUM ULTRA [AVOBENZONE\ENSULIZOLE\ENZACAMENE D-L FORM] [Suspect]
     Active Substance: AVOBENZONE\ENSULIZOLE\ENZACAMENE
     Indication: RASH
     Dosage: UNK
     Route: 065
  2. LAMOTRIGINE. [Suspect]
     Active Substance: LAMOTRIGINE
     Indication: EPILEPSY
     Dosage: 100 MILLIGRAM, ONCE A DAY
     Route: 065

REACTIONS (3)
  - Rash [Not Recovered/Not Resolved]
  - Photosensitivity reaction [Not Recovered/Not Resolved]
  - Pruritus [Not Recovered/Not Resolved]
